FAERS Safety Report 15497223 (Version 1)
Quarter: 2018Q4

REPORT INFORMATION
  Report Type: Spontaneous
  Country: US (occurrence: US)
  Receive Date: 20181013
  Receipt Date: 20181013
  Transmission Date: 20190205
  Serious: No
  Sender: FDA-Public Use
  Company Number: None

PATIENT
  Age: 60 Year
  Sex: Male

DRUGS (4)
  1. METHYLPHENIDATE HCL ER 27 MG TAB [Suspect]
     Active Substance: METHYLPHENIDATE HYDROCHLORIDE
     Route: 048
     Dates: start: 20180829, end: 20181012
  2. TRAMADOL. [Concomitant]
     Active Substance: TRAMADOL
  3. ALPRAZOLAM. [Concomitant]
     Active Substance: ALPRAZOLAM
  4. ZOLPIDEM [Concomitant]
     Active Substance: ZOLPIDEM\ZOLPIDEM TARTRATE

REACTIONS (6)
  - Fatigue [None]
  - Product substitution issue [None]
  - Dizziness [None]
  - Decreased appetite [None]
  - Hyperhidrosis [None]
  - Feeling abnormal [None]

NARRATIVE: CASE EVENT DATE: 20180905
